FAERS Safety Report 19813370 (Version 1)
Quarter: 2021Q3

REPORT INFORMATION
  Report Type: Spontaneous
  Country: US (occurrence: US)
  Receive Date: 20210909
  Receipt Date: 20210909
  Transmission Date: 20211014
  Serious: No
  Sender: FDA-Public Use
  Company Number: US-PERRIGO-21US006588

PATIENT
  Age: 60 Year
  Sex: Female
  Weight: 87.98 kg

DRUGS (4)
  1. MINOXIDIL. [Suspect]
     Active Substance: MINOXIDIL
     Indication: ALOPECIA
     Dosage: 2 ML, BID
     Route: 061
     Dates: start: 20200220, end: 202008
  2. ATENOLOL AND CHLORTHALIDONE [Concomitant]
     Active Substance: ATENOLOL\CHLORTHALIDONE
     Indication: HYPERTENSION
     Dosage: 50/25 MG, QD
     Route: 065
  3. MINOXIDIL. [Suspect]
     Active Substance: MINOXIDIL
     Dosage: 2 ML, QD
     Route: 061
     Dates: start: 202008, end: 202102
  4. FUROSEMIDE. [Concomitant]
     Active Substance: FUROSEMIDE
     Indication: FLUID RETENTION
     Dosage: 40 MG, QD
     Route: 065

REACTIONS (4)
  - Inappropriate schedule of product administration [Recovered/Resolved]
  - Product administered at inappropriate site [Recovered/Resolved]
  - Dizziness [Recovered/Resolved]
  - Overdose [Recovered/Resolved]

NARRATIVE: CASE EVENT DATE: 20200220
